FAERS Safety Report 18587378 (Version 2)
Quarter: 2021Q1

REPORT INFORMATION
  Report Type: Spontaneous
  Country: US (occurrence: US)
  Receive Date: 20201207
  Receipt Date: 20210115
  Transmission Date: 20210419
  Serious: No
  Sender: FDA-Public Use
  Company Number: US-JNJFOC-20201203707

PATIENT
  Age: 62 Year
  Sex: Male

DRUGS (11)
  1. ATORVASTATIN [Concomitant]
     Active Substance: ATORVASTATIN
     Indication: CARDIAC DISORDER
     Dates: start: 200907
  2. LOSARTAN POTASSIUM. [Concomitant]
     Active Substance: LOSARTAN POTASSIUM
     Dates: start: 200907
  3. EZETIMIBE. [Concomitant]
     Active Substance: EZETIMIBE
     Indication: CARDIAC DISORDER
     Dates: start: 202007
  4. ASPRIN [Concomitant]
     Active Substance: ASPIRIN
     Dates: start: 2009
  5. VITA OMEGA [Concomitant]
     Route: 065
  6. MULTIVITAMINES AND MINERALS [Concomitant]
     Active Substance: MINERALS\VITAMINS
     Route: 065
  7. ERLEADA [Suspect]
     Active Substance: APALUTAMIDE
     Indication: PROSTATE CANCER METASTATIC
     Route: 048
     Dates: start: 20201127
  8. METOPROLOL. [Concomitant]
     Active Substance: METOPROLOL
     Dates: start: 200907
  9. PANTOPRAZOLE [Concomitant]
     Active Substance: PANTOPRAZOLE
     Dates: start: 2009
  10. VITALITY CALCIUM COMPLETE [Concomitant]
  11. LUPRON [Concomitant]
     Active Substance: LEUPROLIDE ACETATE
     Indication: PROSTATE CANCER METASTATIC
     Dates: start: 202003

REACTIONS (4)
  - Hot flush [Not Recovered/Not Resolved]
  - Hypertension [Not Recovered/Not Resolved]
  - Blood glucose increased [Not Recovered/Not Resolved]
  - Fatigue [Not Recovered/Not Resolved]

NARRATIVE: CASE EVENT DATE: 2020
